FAERS Safety Report 7743293-5 (Version None)
Quarter: 2011Q3

REPORT INFORMATION
  Report Type: 
  Country: None (occurrence: None)
  Receive Date: 20110912
  Receipt Date: 20110908
  Transmission Date: 20111222
  Serious: Yes (Hospitalization, Other)
  Sender: FDA-Public Use
  Company Number: JP-GENZYME-FABR-1002104

PATIENT
  Age: 37 Year
  Sex: Male

DRUGS (4)
  1. REPLAGAL [Suspect]
     Indication: FABRY'S DISEASE
     Dosage: 0.2 MG/KG, Q2W
     Route: 042
     Dates: start: 20010901, end: 20050101
  2. REPLAGAL [Suspect]
     Dosage: 0.2 MG/KG, Q2W
     Route: 042
     Dates: start: 20070101
  3. CARBAMAZEPINE [Concomitant]
     Indication: PAIN
     Route: 065
  4. FABRAZYME [Suspect]
     Indication: FABRY'S DISEASE
     Dosage: 1 MG/KG, Q2W
     Route: 042
     Dates: start: 20050101, end: 20070101

REACTIONS (2)
  - RENAL FAILURE CHRONIC [None]
  - THROMBOSIS [None]
